FAERS Safety Report 22880558 (Version 3)
Quarter: 2023Q4

REPORT INFORMATION
  Report Type: Spontaneous
  Country: US (occurrence: US)
  Receive Date: 20230829
  Receipt Date: 20231031
  Transmission Date: 20240109
  Serious: Yes (Hospitalization, Other)
  Sender: FDA-Public Use
  Company Number: US-009507513-2308USA008770

PATIENT
  Age: 71 Year
  Sex: Female

DRUGS (2)
  1. SIVEXTRO [Suspect]
     Active Substance: TEDIZOLID PHOSPHATE
     Indication: Device related infection
     Dosage: 200 MILLIGRAM, QD
     Route: 048
     Dates: start: 20220817, end: 202307
  2. ZYVOX [Suspect]
     Active Substance: LINEZOLID
     Dosage: UNK

REACTIONS (6)
  - Myelosuppression [Recovered/Resolved]
  - Pancytopenia [Recovered/Resolved]
  - Product dose omission issue [Unknown]
  - Product use issue [Unknown]
  - Product supply issue [Unknown]
  - Product use in unapproved indication [Unknown]

NARRATIVE: CASE EVENT DATE: 20220817
